FAERS Safety Report 23933800 (Version 8)
Quarter: 2025Q3

REPORT INFORMATION
  Report Type: Spontaneous
  Country: US (occurrence: US)
  Receive Date: 20240603
  Receipt Date: 20250808
  Transmission Date: 20251021
  Serious: No
  Sender: CSL BEHRING
  Company Number: US-BEH-2024171919

PATIENT
  Sex: Female
  Weight: 96.599 kg

DRUGS (13)
  1. BERINERT [Suspect]
     Active Substance: HUMAN C1-ESTERASE INHIBITOR
     Indication: Hereditary angioedema
     Route: 042
     Dates: start: 201901
  2. BERINERT [Suspect]
     Active Substance: HUMAN C1-ESTERASE INHIBITOR
     Indication: Hereditary angioedema
     Route: 042
     Dates: start: 201901
  3. BERINERT [Suspect]
     Active Substance: HUMAN C1-ESTERASE INHIBITOR
     Route: 065
  4. BERINERT [Suspect]
     Active Substance: HUMAN C1-ESTERASE INHIBITOR
     Route: 065
  5. BERINERT [Suspect]
     Active Substance: HUMAN C1-ESTERASE INHIBITOR
     Route: 042
     Dates: start: 202409
  6. BERINERT [Suspect]
     Active Substance: HUMAN C1-ESTERASE INHIBITOR
     Route: 042
     Dates: start: 202409
  7. CINRYZE [Concomitant]
     Active Substance: HUMAN C1-ESTERASE INHIBITOR
  8. SODIUM CHLORIDE [Concomitant]
     Active Substance: SODIUM CHLORIDE
  9. HEPARIN [Concomitant]
     Active Substance: HEPARIN SODIUM
  10. TAKHZYRO [Concomitant]
     Active Substance: LANADELUMAB-FLYO
  11. EPINEPHRINE [Concomitant]
     Active Substance: EPINEPHRINE
  12. SODIUM CHLORIDE [Concomitant]
     Active Substance: SODIUM CHLORIDE
  13. SODIUM CHLORIDE [Concomitant]
     Active Substance: SODIUM CHLORIDE

REACTIONS (10)
  - Weight decreased [Unknown]
  - Weight decreased [Unknown]
  - Weight increased [Unknown]
  - Infusion site haemorrhage [Unknown]
  - Weight decreased [Unknown]
  - Weight decreased [Unknown]
  - Illness [Unknown]
  - Hypersensitivity [Unknown]
  - Weight decreased [Unknown]
  - Weight decreased [Unknown]
